FAERS Safety Report 6871918-5 (Version None)
Quarter: 2010Q3

REPORT INFORMATION
  Report Type: 
  Country: None (occurrence: None)
  Receive Date: 20100723
  Receipt Date: 20100715
  Transmission Date: 20110219
  Serious: Yes (Other)
  Sender: FDA-Public Use
  Company Number: JP-JNJFOC-20100705922

PATIENT
  Sex: Female

DRUGS (2)
  1. TOPIRAMATE [Suspect]
     Indication: EPILEPSY
     Dosage: 1 IN EVENING AND 1 BEFOR SLEEP
     Route: 048
  2. TEGRETOL [Suspect]
     Indication: EPILEPSY
     Route: 048

REACTIONS (3)
  - CHEST DISCOMFORT [None]
  - GAIT DISTURBANCE [None]
  - PALPITATIONS [None]
